FAERS Safety Report 8320362-2 (Version None)
Quarter: 2012Q2

REPORT INFORMATION
  Report Type: 
  Country: None (occurrence: None)
  Receive Date: 20120430
  Receipt Date: 20120425
  Transmission Date: 20120825
  Serious: No
  Sender: FDA-Public Use
  Company Number: US-PFIZER INC-2012102870

PATIENT
  Sex: Male

DRUGS (2)
  1. CELEBREX [Suspect]
     Indication: BURSITIS
     Dosage: 200 MG, 1X/DAY
     Route: 048
     Dates: start: 20120301
  2. DOXEPIN [Concomitant]
     Indication: INSOMNIA
     Dosage: UNK

REACTIONS (1)
  - INSOMNIA [None]
